FAERS Safety Report 7265106-0 (Version None)
Quarter: 2011Q1

REPORT INFORMATION
  Report Type: 
  Country: None (occurrence: None)
  Receive Date: 20110131
  Receipt Date: 20110120
  Transmission Date: 20110831
  Serious: Yes (Other)
  Sender: FDA-Public Use
  Company Number: CA-JNJFOC-20110106050

PATIENT
  Sex: Female
  Weight: 55 kg

DRUGS (9)
  1. TRAZODONE [Concomitant]
  2. ATENOLOL [Concomitant]
  3. VENLAFAXINE [Concomitant]
  4. CLONAZEPAM [Concomitant]
  5. BOTOX [Concomitant]
  6. REMICADE [Suspect]
     Indication: ANKYLOSING SPONDYLITIS
     Route: 042
  7. METHOTREXATE [Concomitant]
     Route: 058
  8. LYRICA [Concomitant]
  9. MAXERAN [Concomitant]

REACTIONS (3)
  - INCISION SITE OEDEMA [None]
  - INCISION SITE ERYTHEMA [None]
  - CYST [None]
